FAERS Safety Report 4757975-0 (Version None)
Quarter: 2005Q3

REPORT INFORMATION
  Report Type: 
  Country: None (occurrence: None)
  Receive Date: 20050826
  Receipt Date: 20040730
  Transmission Date: 20060218
  Serious: Yes (Hospitalization)
  Sender: FDA-Public Use
  Company Number: CIP04001662

PATIENT
  Age: 57 Year
  Sex: Female

DRUGS (1)
  1. ASACOL [Suspect]
     Indication: COLITIS
     Dosage: 400 MG THREE TIMES DAILY, ORAL
     Route: 048
     Dates: start: 20040101

REACTIONS (3)
  - ABDOMINAL DISCOMFORT [None]
  - ABDOMINAL PAIN [None]
  - STOOL ANALYSIS ABNORMAL [None]
